FAERS Safety Report 7984084-X (Version None)
Quarter: 2011Q4

REPORT INFORMATION
  Report Type: 
  Country: None (occurrence: None)
  Receive Date: 20111216
  Receipt Date: 20111214
  Transmission Date: 20120403
  Serious: No
  Sender: FDA-Public Use
  Company Number: US-PFIZER INC-2011305617

PATIENT
  Sex: Female
  Weight: 68.027 kg

DRUGS (3)
  1. LITHIUM [Concomitant]
     Indication: ANXIETY
     Dosage: 300 MG IN THE MORNING AND 450 MG AT NIGHT
  2. GEODON [Suspect]
     Indication: BIPOLAR DISORDER
     Dosage: 80 MG IN THE MORNING AND 120 MG AT NIGHT
     Route: 048
     Dates: start: 20090101
  3. ZOLOFT [Concomitant]
     Indication: ANXIETY
     Dosage: 50 MG, 2X/DAY

REACTIONS (2)
  - INSOMNIA [None]
  - COLD SWEAT [None]
